FAERS Safety Report 6993395-6 (Version None)
Quarter: 2010Q3

REPORT INFORMATION
  Report Type: 
  Country: None (occurrence: None)
  Receive Date: 20100917
  Receipt Date: 20100714
  Transmission Date: 20110219
  Serious: No
  Sender: FDA-Public Use
  Company Number: US-ASTRAZENECA-2010SE33008

PATIENT
  Age: 57 Year
  Sex: Male

DRUGS (10)
  1. SEROQUEL XR [Suspect]
     Indication: BIPOLAR DISORDER
     Route: 048
     Dates: start: 20100601
  2. PROZAC [Concomitant]
  3. METOPROLOL [Concomitant]
  4. LISINOPRIL [Concomitant]
  5. OMEPRAZOLE [Concomitant]
  6. LUNESTA [Concomitant]
  7. PRAVASTATIN [Concomitant]
  8. ASA BABY [Concomitant]
  9. COUMADIN [Concomitant]
  10. NITROGLYCERIN [Concomitant]

REACTIONS (2)
  - FEELING ABNORMAL [None]
  - SOMNOLENCE [None]
